FAERS Safety Report 18844252 (Version 1)
Quarter: 2021Q1

REPORT INFORMATION
  Report Type: Report from Study
  Country: US (occurrence: US)
  Receive Date: 20210203
  Receipt Date: 20210203
  Transmission Date: 20210419
  Serious: No
  Sender: FDA-Public Use
  Company Number: US-EXELIXIS-CABO-20026878

PATIENT
  Sex: Female

DRUGS (1)
  1. CABOMETYX [Suspect]
     Active Substance: CABOZANTINIB S-MALATE
     Indication: RENAL CELL CARCINOMA
     Dosage: 40 MG, QD
     Dates: start: 20191227, end: 20200123

REACTIONS (13)
  - Constipation [Unknown]
  - Palmar-plantar erythrodysaesthesia syndrome [Unknown]
  - Dysphonia [Unknown]
  - Fatigue [Unknown]
  - Ageusia [Unknown]
  - Dry skin [Unknown]
  - Pharyngeal swelling [Unknown]
  - Tendonitis [Unknown]
  - Memory impairment [Unknown]
  - Decreased appetite [Unknown]
  - Mouth swelling [Unknown]
  - Weight decreased [Unknown]
  - Throat tightness [Unknown]
